FAERS Safety Report 20935617 (Version 1)
Quarter: 2022Q2

REPORT INFORMATION
  Report Type: Report from Study
  Country: IT (occurrence: IT)
  Receive Date: 20220609
  Receipt Date: 20220609
  Transmission Date: 20220721
  Serious: Yes (Hospitalization)
  Sender: FDA-Public Use
  Company Number: None

PATIENT
  Age: 61 Year
  Sex: Male
  Weight: 122 kg

DRUGS (11)
  1. FLUOROURACIL [Suspect]
     Active Substance: FLUOROURACIL
     Indication: Colon cancer
     Route: 042
     Dates: start: 20220301, end: 20220301
  2. FLUOROURACIL [Suspect]
     Active Substance: FLUOROURACIL
     Route: 042
     Dates: start: 20220301, end: 20220301
  3. OXALIPLATIN [Suspect]
     Active Substance: OXALIPLATIN
     Indication: Colon cancer
     Route: 042
     Dates: start: 20220301, end: 20220301
  4. BEVACIZUMAB [Suspect]
     Active Substance: BEVACIZUMAB
     Indication: Colon cancer
     Route: 042
     Dates: start: 20220301, end: 20220301
  5. GENERIC DOC FENOFIBRATE [Concomitant]
     Dosage: FENOFIBRATO DOC GENERICI
  6. RIFAXIMIN [Concomitant]
     Active Substance: RIFAXIMIN
  7. METFORMIN ACCORD [Concomitant]
     Dosage: METFORMINA ACCORD
  8. LERCANIDIPINE ZENTIVA [Concomitant]
     Dosage: LERCANIDIPINA ZENTIVA , FORM STRENGTH : 10 MG
  9. PANTOPRAZOLE SODIUM [Concomitant]
     Active Substance: PANTOPRAZOLE SODIUM
  10. REPAGLINIDE ACCORD [Concomitant]
  11. NEBIVOLOL ABC [Concomitant]
     Dosage: NEBIVOLOLO ABC

REACTIONS (1)
  - Acute myocardial infarction [Recovering/Resolving]

NARRATIVE: CASE EVENT DATE: 20220304
